FAERS Safety Report 4804513-X (Version None)
Quarter: 2005Q4

REPORT INFORMATION
  Report Type: 
  Country: None (occurrence: None)
  Receive Date: 20051018
  Receipt Date: 20051018
  Transmission Date: 20060501
  Serious: Yes (Other)
  Sender: FDA-Public Use
  Company Number: None

PATIENT
  Age: 71 Year
  Sex: Male
  Weight: 111.1313 kg

DRUGS (1)
  1. MINOXIDIL [Suspect]
     Indication: HYPERTENSION
     Dosage: 2.5MG DAILY PO
     Route: 048
     Dates: start: 20051003, end: 20051007

REACTIONS (3)
  - AGITATION [None]
  - EYE SWELLING [None]
  - NERVOUSNESS [None]
